FAERS Safety Report 7485711-6 (Version None)
Quarter: 2011Q2

REPORT INFORMATION
  Report Type: 
  Country: None (occurrence: None)
  Receive Date: 20110516
  Receipt Date: 20110516
  Transmission Date: 20111010
  Serious: Yes (Life-Threatening, Hospitalization, Disabling)
  Sender: FDA-Public Use
  Company Number: None

PATIENT
  Age: 79 Year
  Sex: Female
  Weight: 63.5036 kg

DRUGS (1)
  1. ATIVAN [Suspect]
     Indication: SMOKING CESSATION THERAPY
     Dosage: VARIED-SHE NEVER TOOK AS MUCH AS PRESCRIBED  VARIED-BUT ALWAYS UNDER THE REC. DOSAGE

REACTIONS (6)
  - ANGER [None]
  - ACTIVITIES OF DAILY LIVING IMPAIRED [None]
  - DEMENTIA ALZHEIMER'S TYPE [None]
  - DEPRESSION [None]
  - HYPOPHAGIA [None]
  - NIGHTMARE [None]
